FAERS Safety Report 16759732 (Version 7)
Quarter: 2021Q1

REPORT INFORMATION
  Report Type: Report from Study
  Country: CN (occurrence: CN)
  Receive Date: 20190830
  Receipt Date: 20210226
  Transmission Date: 20210419
  Serious: No
  Sender: FDA-Public Use
  Company Number: CN-TESAROUBC-2019-TSO03011-CN

PATIENT

DRUGS (63)
  1. BLINDED NIRAPARIB [Suspect]
     Active Substance: NIRAPARIB
     Dosage: 200 MG, QD
     Dates: start: 20190913, end: 20200327
  2. PROTAMINE ZINC INSULIN INJECTION [Concomitant]
     Indication: PRODUCT USED FOR UNKNOWN INDICATION
     Dosage: UNK
     Dates: start: 20190406, end: 20191210
  3. FUDOSTEINE [Concomitant]
     Active Substance: FUDOSTEINE
     Indication: COUGH
     Dosage: 0.4 G, TID
     Route: 048
     Dates: start: 20191108, end: 20191210
  4. METFORMIN HYDROCHLORIDE. [Concomitant]
     Active Substance: METFORMIN HYDROCHLORIDE
     Indication: TYPE 2 DIABETES MELLITUS
     Dosage: 0.25 G, TID
     Route: 048
     Dates: start: 20191018, end: 20191023
  5. ISOPHANE PROTAMINE BIOSYNTHETIC HUMAN INSULIN [Concomitant]
     Active Substance: INSULIN HUMAN
     Dosage: 8 IU, QN IH
     Dates: start: 20191216, end: 20200104
  6. SERATRODAST [Concomitant]
     Active Substance: SERATRODAST
     Indication: COUGH
     Dosage: 80 MG, QD
     Route: 048
     Dates: start: 20191203, end: 20191210
  7. BLINDED NIRAPARIB [Suspect]
     Active Substance: NIRAPARIB
     Dosage: 200 MG, QD
     Dates: start: 20200329, end: 20200401
  8. TELMISARTAN. [Concomitant]
     Active Substance: TELMISARTAN
     Indication: HYPERTENSION
     Dosage: 80 MG, QD
     Route: 048
     Dates: start: 20191018, end: 20191026
  9. GLUCOSE [Concomitant]
     Active Substance: DEXTROSE
     Indication: FLUID REPLACEMENT
     Dosage: 25 G, QD
     Route: 042
     Dates: start: 20191018, end: 20191020
  10. GLUCOSE [Concomitant]
     Active Substance: DEXTROSE
     Dosage: 25 G, QD
     Route: 042
     Dates: start: 20191018, end: 20191025
  11. BICYCLOL [Concomitant]
     Active Substance: BICYCLOL
     Indication: PROPHYLAXIS
     Dosage: UNK
     Dates: start: 20190817, end: 20191210
  12. CEFDINIR. [Concomitant]
     Active Substance: CEFDINIR
     Indication: COUGH
     Dosage: 50 MG, BID
     Route: 048
     Dates: start: 20191108, end: 20191203
  13. INSULIN GLARGINE [Concomitant]
     Active Substance: INSULIN GLARGINE
     Indication: TYPE 2 DIABETES MELLITUS
     Dosage: 21 IU, QN, IH
     Route: 048
     Dates: start: 20191022, end: 20191025
  14. INSULIN HUMAN RECOMBINANT [Concomitant]
     Dosage: 12 IU, TID
     Dates: start: 20200412
  15. VITAMIN B6 [Concomitant]
     Active Substance: PYRIDOXINE HYDROCHLORIDE
     Indication: FLUID REPLACEMENT
     Dosage: 0.3 G, QD
     Route: 042
     Dates: start: 20191210, end: 20191212
  16. BLINDED NIRAPARIB [Suspect]
     Active Substance: NIRAPARIB
     Dosage: 200 MG, QD
     Dates: start: 20190708, end: 20190820
  17. PLACEBO [Suspect]
     Active Substance: UNSPECIFIED INGREDIENT
     Dosage: 200 MG, QD
     Dates: start: 20200403, end: 20200412
  18. METFORMIN [Concomitant]
     Active Substance: METFORMIN HYDROCHLORIDE
     Dosage: 0.5 G, TID
     Route: 048
     Dates: start: 20191026, end: 20191103
  19. METFORMIN [Concomitant]
     Active Substance: METFORMIN HYDROCHLORIDE
     Dosage: 0.5 G, TID
     Route: 048
     Dates: start: 20191216, end: 20200208
  20. BISOPROLOL [Concomitant]
     Active Substance: BISOPROLOL
     Dosage: 2.5 MG, QD
     Route: 048
     Dates: start: 20191203
  21. ASPIRIN. [Concomitant]
     Active Substance: ASPIRIN
     Dosage: 100 MG, QD
     Route: 048
     Dates: start: 20191216, end: 20200407
  22. POTASSIUM CHLORIDE. [Concomitant]
     Active Substance: POTASSIUM CHLORIDE
     Dosage: 1 G, TID
     Route: 048
     Dates: start: 20191022, end: 20191025
  23. VITAMIN C [Concomitant]
     Active Substance: ASCORBIC ACID
     Dosage: 3 G, QD
     Route: 042
     Dates: start: 20191210, end: 20191212
  24. INSULIN HUMAN RECOMBINANT [Concomitant]
     Dosage: 14 IU, BID
     Dates: start: 20200209, end: 20200406
  25. RECOMBINANT HUMAN GRANULOCYTE COLONY?STIMULATING FACTOR [Concomitant]
     Active Substance: GRANULOCYTE COLONY-STIMULATING FACTOR NOS
     Indication: WHITE BLOOD CELL COUNT INCREASED
     Dosage: 100 UG, QD
     Dates: start: 20200424, end: 20200424
  26. BLINDED NIRAPARIB [Suspect]
     Active Substance: NIRAPARIB
     Indication: OVARIAN CANCER
     Dosage: 200 MG, QD
     Dates: start: 20190227, end: 20190706
  27. POLYENE PHOSPHATIDYLCHOLINE [Concomitant]
     Active Substance: PHOSPHOLIPID
     Indication: PRODUCT USED FOR UNKNOWN INDICATION
     Dosage: UNK
     Dates: start: 20190718, end: 20190812
  28. SILYMARIN [Concomitant]
     Active Substance: DIETARY SUPPLEMENT\HERBALS\MILK THISTLE
     Indication: PRODUCT USED FOR UNKNOWN INDICATION
     Dosage: UNK
     Dates: start: 20190718, end: 20190812
  29. BICYCLOL [Concomitant]
     Active Substance: BICYCLOL
     Indication: DRUG THERAPY
     Dosage: 25 MG, BID
     Route: 048
     Dates: start: 20191216, end: 20200302
  30. VITAMIN C [Concomitant]
     Active Substance: ASCORBIC ACID
     Indication: FLUID REPLACEMENT
     Dosage: 2 G, QD
     Route: 042
     Dates: start: 20191018, end: 20191025
  31. SODIUM CHLORIDE + TINIDAZOLE [Concomitant]
     Indication: ANTI-INFECTIVE THERAPY
     Dosage: 100 ML, BID
     Route: 042
     Dates: start: 20191210, end: 20191216
  32. PLACEBO [Suspect]
     Active Substance: UNSPECIFIED INGREDIENT
     Indication: OVARIAN CANCER
     Dosage: 200 MG, QD
     Dates: start: 20190227, end: 20190706
  33. LEVAMLODIPINE BESYLATE [Concomitant]
     Active Substance: LEVAMLODIPINE BESYLATE
     Indication: PRODUCT USED FOR UNKNOWN INDICATION
     Dosage: UNK
     Dates: start: 201411
  34. METFORMIN [Concomitant]
     Active Substance: METFORMIN HYDROCHLORIDE
     Dosage: 0.5 G, BID
     Route: 048
     Dates: start: 20200209, end: 20200406
  35. BISOPROLOL [Concomitant]
     Active Substance: BISOPROLOL
     Indication: PALPITATIONS
     Dosage: UNK
     Dates: start: 20190409, end: 20191102
  36. POTASSIUM CHLORIDE. [Concomitant]
     Active Substance: POTASSIUM CHLORIDE
     Indication: MINERAL SUPPLEMENTATION
     Dosage: 10 ML, QD
     Route: 042
     Dates: start: 20191018, end: 20191020
  37. POTASSIUM CHLORIDE. [Concomitant]
     Active Substance: POTASSIUM CHLORIDE
     Dosage: 15 ML, QD
     Route: 042
     Dates: start: 20191018, end: 20191025
  38. INSULIN HUMAN RECOMBINANT [Concomitant]
     Dosage: 14?14?14 IU, BEFORE THREE MEALS
     Dates: start: 20200104, end: 20200208
  39. OMEPRAZOLE SODIUM [Concomitant]
     Active Substance: OMEPRAZOLE SODIUM
     Indication: PROPHYLAXIS AGAINST GASTROINTESTINAL ULCER
     Dosage: 40 MG, BID
     Route: 042
     Dates: start: 20191210, end: 20191216
  40. PLACEBO [Suspect]
     Active Substance: UNSPECIFIED INGREDIENT
     Dosage: 200 MG, QD
     Dates: start: 20190708, end: 20190820
  41. NIMODIPINE. [Concomitant]
     Active Substance: NIMODIPINE
     Indication: PRODUCT USED FOR UNKNOWN INDICATION
     Dosage: UNK
     Dates: start: 201411
  42. METFORMIN [Concomitant]
     Active Substance: METFORMIN HYDROCHLORIDE
     Indication: TYPE 2 DIABETES MELLITUS
     Dosage: UNK
     Dates: start: 20190320, end: 20191210
  43. GENSULIN N [Concomitant]
     Indication: PRODUCT USED FOR UNKNOWN INDICATION
     Dosage: UNK
     Dates: start: 20190320, end: 20191021
  44. RACEANISODAMINE [Concomitant]
     Indication: ABDOMINAL PAIN
     Dosage: 5 MG, QD
     Route: 048
     Dates: start: 20191017, end: 20191018
  45. METFORMIN HYDROCHLORIDE. [Concomitant]
     Active Substance: METFORMIN HYDROCHLORIDE
     Dosage: 0.5 G, TID
     Route: 048
     Dates: start: 20191023, end: 20191026
  46. POTASSIUM CHLORIDE. [Concomitant]
     Active Substance: POTASSIUM CHLORIDE
     Dosage: 10 ML, QD
     Route: 042
     Dates: start: 20191210, end: 20191212
  47. INSULIN HUMAN RECOMBINANT [Concomitant]
     Indication: TYPE 2 DIABETES MELLITUS
     Dosage: 14 IU, BEFORE THREE MEALS
     Dates: start: 20191216, end: 20200103
  48. CEFAMANDOLE NAFATE [Concomitant]
     Active Substance: CEFAMANDOLE NAFATE
     Indication: ANTI-INFECTIVE THERAPY
     Dosage: 2 G, BID
     Route: 042
     Dates: start: 20191210, end: 20191216
  49. PLACEBO [Suspect]
     Active Substance: UNSPECIFIED INGREDIENT
     Dosage: 200 MG, QD
     Dates: start: 20190913, end: 20200327
  50. PLACEBO [Suspect]
     Active Substance: UNSPECIFIED INGREDIENT
     Dosage: 200 MG, QD
     Dates: start: 20200329, end: 20200401
  51. BLINDED NIRAPARIB [Suspect]
     Active Substance: NIRAPARIB
     Dosage: 200 MG, QD
     Dates: start: 20200403, end: 20200412
  52. VALSARTAN. [Concomitant]
     Active Substance: VALSARTAN
     Indication: PRODUCT USED FOR UNKNOWN INDICATION
     Dosage: UNK
     Dates: start: 201411
  53. ASPIRIN. [Concomitant]
     Active Substance: ASPIRIN
     Indication: THROMBOSIS PROPHYLAXIS
     Dosage: UNK
     Dates: start: 20190304, end: 20191210
  54. RACEANISODAMINE [Concomitant]
     Indication: INTESTINAL OBSTRUCTION
     Dosage: 10 MG, QD
     Route: 048
     Dates: start: 20191210, end: 20191210
  55. ALANYL GLUTAMINE [Concomitant]
     Active Substance: ALANYL GLUTAMINE
     Indication: PROPHYLAXIS
     Dosage: 20 MG, QD
     Route: 042
     Dates: start: 20191018, end: 20191026
  56. ISOPHANE PROTAMINE BIOSYNTHETIC HUMAN INSULIN [Concomitant]
     Active Substance: INSULIN HUMAN
     Indication: TYPE 2 DIABETES MELLITUS
     Dosage: 8 IU, QN IH
     Dates: start: 20191026, end: 20191210
  57. INSULIN ASPART [Concomitant]
     Active Substance: INSULIN ASPART
     Indication: TYPE 2 DIABETES MELLITUS
     Dosage: UNK, TID
     Route: 042
     Dates: start: 20191018, end: 20191025
  58. POTASSIUM CHLORIDE. [Concomitant]
     Active Substance: POTASSIUM CHLORIDE
     Indication: FLUID REPLACEMENT
     Dosage: 10 ML, BID
     Route: 042
     Dates: start: 20191018, end: 20191020
  59. POTASSIUM CHLORIDE. [Concomitant]
     Active Substance: POTASSIUM CHLORIDE
     Dosage: 20 ML, QD
     Route: 042
     Dates: start: 20191020, end: 20191020
  60. POTASSIUM CHLORIDE. [Concomitant]
     Active Substance: POTASSIUM CHLORIDE
     Dosage: 30 ML, QD
     Route: 042
     Dates: start: 20191021, end: 20191021
  61. INSULIN HUMAN RECOMBINANT [Concomitant]
     Dosage: 14 IU, TID
     Dates: start: 20200407, end: 20200411
  62. SERATRODAST [Concomitant]
     Active Substance: SERATRODAST
     Dosage: 80 MG, QD
     Route: 048
     Dates: start: 20191216, end: 20200222
  63. DIYUSHENGBAI [Concomitant]
     Indication: BLOOD DISORDER PROPHYLAXIS
     Dosage: 0.4 G
     Route: 048
     Dates: start: 20200418

REACTIONS (1)
  - Interstitial lung disease [Recovering/Resolving]

NARRATIVE: CASE EVENT DATE: 20190815
